FAERS Safety Report 4874326-1 (Version None)
Quarter: 2006Q1

REPORT INFORMATION
  Report Type: 
  Country: None (occurrence: None)
  Receive Date: 20060106
  Receipt Date: 20051219
  Transmission Date: 20060701
  Serious: Yes (Other)
  Sender: FDA-Public Use
  Company Number: FR-SANOFI-SYNTHELABO-A02200503386

PATIENT
  Age: 33 Year
  Sex: Female

DRUGS (4)
  1. STILNOX [Suspect]
     Indication: DRUG USE FOR UNKNOWN INDICATION
     Dosage: PROGRESSIVE INCREASE UP TO 300 MG DAILY
     Route: 048
     Dates: start: 19940101, end: 20010101
  2. STILNOX [Suspect]
     Indication: DRUG ABUSER
     Dosage: PROGRESSIVE INCREASE UP TO 300 MG DAILY
     Route: 048
     Dates: start: 19940101, end: 20010101
  3. STILNOX [Suspect]
     Dosage: 120 MG
     Route: 048
     Dates: start: 20010101
  4. STILNOX [Suspect]
     Dosage: 120 MG
     Route: 048
     Dates: start: 20010101

REACTIONS (4)
  - AMENORRHOEA [None]
  - DRUG ABUSER [None]
  - MYALGIA [None]
  - PHARYNGEAL OEDEMA [None]
